FAERS Safety Report 4432587-7 (Version None)
Quarter: 2004Q3

REPORT INFORMATION
  Report Type: 
  Country: None (occurrence: None)
  Receive Date: 20040823
  Receipt Date: 20040809
  Transmission Date: 20050211
  Serious: Yes (Death, Other)
  Sender: FDA-Public Use
  Company Number: 2004056487

PATIENT
  Age: 48 Year
  Sex: Male

DRUGS (3)
  1. LIPITOR [Suspect]
     Indication: ILL-DEFINED DISORDER
  2. CLOPIDOGREL BISULFATE [Suspect]
     Indication: ILL-DEFINED DISORDER
  3. ASPIRIN [Suspect]
     Indication: ILL-DEFINED DISORDER

REACTIONS (6)
  - CARDIAC FAILURE [None]
  - CARDIOGENIC SHOCK [None]
  - DRUG INTERACTION [None]
  - MYOCARDIAL INFARCTION [None]
  - STENT OCCLUSION [None]
  - TREATMENT NONCOMPLIANCE [None]
